FAERS Safety Report 15260513 (Version 1)
Quarter: 2018Q3

REPORT INFORMATION
  Report Type: Spontaneous
  Country: US (occurrence: US)
  Receive Date: 20180809
  Receipt Date: 20180809
  Transmission Date: 20181010
  Serious: Yes (Other)
  Sender: FDA-Public Use
  Company Number: US-MYLANLABS-2018M1060418

PATIENT
  Age: 64 Year
  Sex: Male

DRUGS (3)
  1. EMTRICITABINE [Suspect]
     Active Substance: EMTRICITABINE
     Indication: HIV INFECTION
  2. TENOFOVIR [Suspect]
     Active Substance: TENOFOVIR
     Indication: HIV INFECTION
     Route: 065
  3. DOLUTEGRAVIR [Suspect]
     Active Substance: DOLUTEGRAVIR
     Indication: HIV INFECTION
     Route: 065

REACTIONS (5)
  - Unmasking of previously unidentified disease [Unknown]
  - High-grade B-cell lymphoma [Unknown]
  - Tumour lysis syndrome [Unknown]
  - Immune reconstitution inflammatory syndrome [Unknown]
  - Hypercalcaemia [Unknown]
